FAERS Safety Report 6517103-8 (Version None)
Quarter: 2009Q4

REPORT INFORMATION
  Report Type: 
  Country: None (occurrence: None)
  Receive Date: 20091223
  Receipt Date: 20091217
  Transmission Date: 20100525
  Serious: Yes (Life-Threatening)
  Sender: FDA-Public Use
  Company Number: B0616929A

PATIENT
  Sex: Male
  Weight: 90 kg

DRUGS (18)
  1. ZINNAT [Suspect]
     Indication: ANTIBIOTIC PROPHYLAXIS
     Route: 042
     Dates: start: 20091124, end: 20091124
  2. EXACYL [Suspect]
     Indication: DRUG USE FOR UNKNOWN INDICATION
     Dosage: 1.5G TWICE PER DAY
     Route: 042
     Dates: start: 20091124, end: 20091124
  3. SUFENTANIL CITRATE [Suspect]
     Route: 042
     Dates: start: 20091124, end: 20091124
  4. DIPRIVAN [Suspect]
     Route: 042
     Dates: start: 20091124, end: 20091124
  5. CALCIUM HEPARIN [Suspect]
     Indication: DRUG USE FOR UNKNOWN INDICATION
     Route: 065
     Dates: start: 20091124, end: 20091124
  6. ATARAX [Concomitant]
     Indication: PREMEDICATION
     Route: 065
     Dates: start: 20091124, end: 20091124
  7. XANAX [Concomitant]
     Indication: PREMEDICATION
     Route: 065
     Dates: start: 20091124, end: 20091124
  8. BISOPROLOL FUMARATE [Concomitant]
     Indication: PREMEDICATION
     Route: 065
     Dates: start: 20091124, end: 20091124
  9. DISCOTRINE [Concomitant]
     Indication: PREMEDICATION
     Route: 065
     Dates: start: 20091124, end: 20091124
  10. NORADRENALINE [Concomitant]
     Indication: DRUG USE FOR UNKNOWN INDICATION
     Route: 042
     Dates: start: 20091124, end: 20091124
  11. INSULIN [Concomitant]
     Indication: DRUG USE FOR UNKNOWN INDICATION
     Route: 065
     Dates: start: 20091124
  12. PERFALGAN [Concomitant]
     Indication: DRUG USE FOR UNKNOWN INDICATION
     Route: 065
     Dates: start: 20091124
  13. NEXIUM [Concomitant]
     Indication: DRUG USE FOR UNKNOWN INDICATION
     Route: 065
     Dates: start: 20091124
  14. PLASMION [Concomitant]
     Indication: DRUG USE FOR UNKNOWN INDICATION
     Route: 065
     Dates: start: 20091124
  15. BICARBONATE [Concomitant]
     Indication: DRUG USE FOR UNKNOWN INDICATION
     Route: 065
     Dates: start: 20091124
  16. VITAMIN B COMPLEX CAP [Concomitant]
     Indication: DRUG USE FOR UNKNOWN INDICATION
     Route: 065
     Dates: start: 20091124
  17. G5% PLASMALYTE [Concomitant]
     Indication: DRUG USE FOR UNKNOWN INDICATION
     Route: 065
     Dates: start: 20091124
  18. OLIGOELEMENTS [Concomitant]
     Indication: DRUG USE FOR UNKNOWN INDICATION
     Route: 042
     Dates: start: 20091124

REACTIONS (2)
  - ERYTHEMA [None]
  - HYPOTENSION [None]
